FAERS Safety Report 18648935 (Version 4)
Quarter: 2021Q1

REPORT INFORMATION
  Report Type: Spontaneous
  Country: US (occurrence: US)
  Receive Date: 20201222
  Receipt Date: 20210125
  Transmission Date: 20210419
  Serious: Yes (Other)
  Sender: FDA-Public Use
  Company Number: US-JNJFOC-20201228682

PATIENT
  Age: 75 Year
  Sex: Female
  Weight: 70.37 kg

DRUGS (1)
  1. STELARA [Suspect]
     Active Substance: USTEKINUMAB
     Indication: CROHN^S DISEASE
     Route: 042
     Dates: start: 20201104

REACTIONS (2)
  - Pityriasis rosea [Not Recovered/Not Resolved]
  - Perineal ulceration [Unknown]

NARRATIVE: CASE EVENT DATE: 20201123
